FAERS Safety Report 14517271 (Version 1)
Quarter: 2018Q1

REPORT INFORMATION
  Report Type: Report from Study
  Country: DE (occurrence: DE)
  Receive Date: 20180212
  Receipt Date: 20180212
  Transmission Date: 20180509
  Serious: Yes (Hospitalization)
  Sender: FDA-Public Use
  Company Number: DE-ROCHE-2066182

PATIENT
  Age: 56 Year
  Sex: Male
  Weight: 76 kg

DRUGS (3)
  1. GRANOZYTE [Concomitant]
     Dosage: DOSE: 33.6 U/E
     Route: 058
     Dates: start: 20180202, end: 20180203
  2. OBINUTUZUMAB. [Suspect]
     Active Substance: OBINUTUZUMAB
     Indication: CHRONIC LYMPHOCYTIC LEUKAEMIA
     Dosage: ON 02/JAN/2018, LAST DOSE ADMINISTERED AT 1000 MG.
     Route: 042
     Dates: start: 20170911
  3. VENETOCLAX. [Suspect]
     Active Substance: VENETOCLAX
     Indication: CHRONIC LYMPHOCYTIC LEUKAEMIA
     Dosage: ON 30/JAN/2018, LAST DOSE RECEIVD AT 400 MG.
     Route: 048
     Dates: start: 20171002

REACTIONS (2)
  - Influenza [Recovered/Resolved]
  - Upper respiratory tract infection [Not Recovered/Not Resolved]

NARRATIVE: CASE EVENT DATE: 20180130
